FAERS Safety Report 17152971 (Version 1)
Quarter: 2019Q4

REPORT INFORMATION
  Report Type: Spontaneous
  Country: FR (occurrence: FR)
  Receive Date: 20191213
  Receipt Date: 20191213
  Transmission Date: 20200122
  Serious: Yes (Hospitalization)
  Sender: FDA-Public Use
  Company Number: FR-MYLANLABS-2019M1122750

PATIENT
  Age: 60 Year
  Sex: Male

DRUGS (5)
  1. RIFADINE                           /00146901/ [Suspect]
     Active Substance: RIFAMPIN
     Indication: HAEMATOMA
     Dosage: 1200 MILLIGRAM, QD
     Route: 041
     Dates: start: 20190716
  2. PANTOPRAZOLE [Suspect]
     Active Substance: PANTOPRAZOLE
     Indication: PRODUCT USED FOR UNKNOWN INDICATION
     Dosage: 40 MILLIGRAM, QD
     Route: 048
     Dates: start: 20190716
  3. IZALGI 500 MG/25 MG, G?LULE [Suspect]
     Active Substance: ACETAMINOPHEN\OPIUM
     Indication: PRODUCT USED FOR UNKNOWN INDICATION
     Dosage: 6 DOSAGE FORM, QD
     Route: 048
     Dates: start: 20190716
  4. VANCOMYCINE                        /00314401/ [Concomitant]
     Active Substance: VANCOMYCIN
     Indication: HAEMATOMA
     Dosage: 3 GRAM, QD
     Route: 041
     Dates: start: 20190723, end: 20190726
  5. CEFTRIAXONE. [Concomitant]
     Active Substance: CEFTRIAXONE
     Indication: HAEMATOMA
     Dosage: 2 GRAM, QD
     Route: 041
     Dates: start: 20190723, end: 20190729

REACTIONS (1)
  - Vascular purpura [Not Recovered/Not Resolved]

NARRATIVE: CASE EVENT DATE: 20190725
